FAERS Safety Report 25320010 (Version 1)
Quarter: 2025Q2

REPORT INFORMATION
  Report Type: Spontaneous
  Country: US (occurrence: US)
  Receive Date: 20250515
  Receipt Date: 20250515
  Transmission Date: 20250717
  Serious: Yes (Hospitalization, Other)
  Sender: ALEMBIC
  Company Number: US-ALEMBIC PHARMACUETICALS LIMITED-2025SCAL000480

PATIENT

DRUGS (3)
  1. PACLITAXEL [Suspect]
     Active Substance: PACLITAXEL
     Indication: Triple negative breast cancer
     Route: 065
  2. CARBOPLATIN [Suspect]
     Active Substance: CARBOPLATIN
     Indication: Triple negative breast cancer
     Route: 065
  3. PEMBROLIZUMAB [Suspect]
     Active Substance: PEMBROLIZUMAB
     Indication: Triple negative breast cancer
     Route: 065

REACTIONS (13)
  - Myocarditis [Unknown]
  - Pyrexia [Unknown]
  - Sinus tachycardia [Unknown]
  - Palpitations [Recovering/Resolving]
  - Troponin increased [Recovering/Resolving]
  - C-reactive protein increased [Unknown]
  - Myocardial ischaemia [Unknown]
  - Fatigue [Unknown]
  - Myocardial fibrosis [Unknown]
  - Myocardial oedema [Recovered/Resolved]
  - Rash maculo-papular [Unknown]
  - Arthralgia [Unknown]
  - Bacteraemia [Unknown]
